FAERS Safety Report 25349518 (Version 3)
Quarter: 2025Q2

REPORT INFORMATION
  Report Type: Report from Study
  Country: EG (occurrence: EG)
  Receive Date: 20250522
  Receipt Date: 20250612
  Transmission Date: 20250717
  Serious: No
  Sender: SANDOZ
  Company Number: EG-SANDOZ-SDZ2025EG034516

PATIENT
  Sex: Male

DRUGS (1)
  1. OMNITROPE [Suspect]
     Active Substance: SOMATROPIN
     Indication: Growth hormone deficiency
     Route: 058
     Dates: start: 20241230

REACTIONS (3)
  - Drug dose omission by device [Unknown]
  - Liquid product physical issue [Unknown]
  - Device issue [Unknown]
